FAERS Safety Report 4928963-6 (Version None)
Quarter: 2006Q1

REPORT INFORMATION
  Report Type: 
  Country: None (occurrence: None)
  Receive Date: 20060301
  Receipt Date: 20060125
  Transmission Date: 20060701
  Serious: Yes (Hospitalization)
  Sender: FDA-Public Use
  Company Number: FR-GLAXOSMITHKLINE-B0408169A

PATIENT
  Age: 28 Year
  Sex: Female
  Weight: 55 kg

DRUGS (21)
  1. ZOPHREN [Suspect]
     Dosage: 4MG SINGLE DOSE
     Route: 048
     Dates: start: 20051231, end: 20051231
  2. TRACRIUM [Suspect]
     Route: 065
     Dates: start: 20051231, end: 20051231
  3. TOPALGIC ( FRANCE ) [Suspect]
     Indication: ABDOMINAL PAIN
     Dosage: 400MG PER DAY
     Route: 048
     Dates: start: 20051231, end: 20060102
  4. DAFALGAN [Suspect]
     Indication: ABDOMINAL PAIN
     Dosage: 3G PER DAY
     Route: 048
     Dates: start: 20060102, end: 20060103
  5. SUPRANE [Suspect]
     Route: 055
     Dates: start: 20051231, end: 20051231
  6. PERFALGAN [Suspect]
     Indication: ABDOMINAL PAIN
     Route: 042
     Dates: start: 20051230, end: 20060101
  7. SEVORANE [Suspect]
     Route: 055
     Dates: start: 20051230, end: 20051230
  8. CELOCURINE [Suspect]
     Route: 065
     Dates: start: 20051230, end: 20051230
  9. SUFENTA [Suspect]
     Route: 065
     Dates: start: 20051230, end: 20051230
  10. HYPNOVEL [Suspect]
     Route: 065
     Dates: start: 20051231, end: 20051231
  11. LOVENOX [Suspect]
     Route: 065
     Dates: start: 20060101
  12. AMIKLIN [Suspect]
     Route: 065
     Dates: start: 20051231, end: 20051231
  13. EPHEDRINE [Suspect]
     Route: 065
     Dates: start: 20051231, end: 20051231
  14. ATROPINE [Suspect]
     Route: 065
     Dates: start: 20051231, end: 20051231
  15. PROSTIGMINE [Suspect]
     Route: 065
     Dates: start: 20051231, end: 20051231
  16. MORPHINE [Suspect]
     Route: 065
     Dates: start: 20051230, end: 20051230
  17. DIPRIVAN [Suspect]
     Route: 065
     Dates: start: 20051230, end: 20051230
  18. PRIMPERAN TAB [Concomitant]
     Route: 065
     Dates: start: 20051224, end: 20051231
  19. SPASFON [Concomitant]
     Route: 065
     Dates: start: 20051224
  20. ATARAX [Concomitant]
     Route: 065
     Dates: start: 20051226, end: 20051227
  21. KLEAN PREP [Concomitant]
     Route: 065
     Dates: start: 20051229, end: 20051229

REACTIONS (6)
  - CHOLESTASIS [None]
  - HEPATITIS FULMINANT [None]
  - HEPATOCELLULAR DAMAGE [None]
  - HYPERBILIRUBINAEMIA [None]
  - HYPOGLYCAEMIA [None]
  - HYPOTENSION [None]
